FAERS Safety Report 10793151 (Version 2)
Quarter: 2015Q1

REPORT INFORMATION
  Report Type: Report from Study
  Country: DE (occurrence: DE)
  Receive Date: 20150213
  Receipt Date: 20150320
  Transmission Date: 20150721
  Serious: Yes (Death, Hospitalization)
  Sender: FDA-Public Use
  Company Number: DE-ABBVIE-15P-062-1346934-00

PATIENT
  Age: 74 Year
  Sex: Male
  Weight: 106 kg

DRUGS (1)
  1. LEUPRORELIN (LEUPRORELIN ACETATE) [Suspect]
     Active Substance: LEUPROLIDE ACETATE
     Indication: PROSTATE CANCER
     Route: 058
     Dates: start: 20130102, end: 20140106

REACTIONS (3)
  - Metastases to lymph nodes [Fatal]
  - Prostate cancer [Fatal]
  - Obstructive uropathy [Recovered/Resolved]

NARRATIVE: CASE EVENT DATE: 20140108
